FAERS Safety Report 15637746 (Version 1)
Quarter: 2018Q4

REPORT INFORMATION
  Report Type: Spontaneous
  Country: US (occurrence: US)
  Receive Date: 20181120
  Receipt Date: 20181120
  Transmission Date: 20190205
  Serious: Yes (Disabling, Other)
  Sender: FDA-Public Use
  Company Number: PHEH2018US049223

PATIENT
  Sex: Female

DRUGS (7)
  1. EFFEXOR [Suspect]
     Active Substance: VENLAFAXINE HYDROCHLORIDE
     Indication: DEPRESSION
     Route: 065
  2. PHENTERMINE HYDROCHLORIDE CAPSULES USP [Suspect]
     Active Substance: PHENTERMINE HYDROCHLORIDE
     Indication: DEPRESSION
     Route: 065
  3. DOXEPIN HCL CAPSULES USP [Suspect]
     Active Substance: DOXEPIN HYDROCHLORIDE
     Indication: DEPRESSION
     Route: 065
  4. PROZAC [Suspect]
     Active Substance: FLUOXETINE HYDROCHLORIDE
     Indication: DEPRESSION
     Route: 065
  5. ZOLOFT [Suspect]
     Active Substance: SERTRALINE HYDROCHLORIDE
     Indication: DEPRESSION
     Route: 065
  6. NARDIL [Suspect]
     Active Substance: PHENELZINE SULFATE
     Indication: PRODUCT USED FOR UNKNOWN INDICATION
     Route: 065
  7. WELLBUTRIN [Suspect]
     Active Substance: BUPROPION HYDROCHLORIDE
     Indication: DEPRESSION
     Route: 065

REACTIONS (14)
  - Depression [Unknown]
  - Weight increased [Unknown]
  - Chest pain [Unknown]
  - Arrhythmia [Unknown]
  - Drug ineffective [Unknown]
  - Fatigue [Unknown]
  - Product use in unapproved indication [Unknown]
  - Fibromyalgia [Unknown]
  - Heart rate irregular [Unknown]
  - Paranoia [Unknown]
  - Hallucination [Unknown]
  - Dyspnoea [Unknown]
  - Somnolence [Unknown]
  - Headache [Unknown]
